FAERS Safety Report 13869289 (Version 10)
Quarter: 2019Q4

REPORT INFORMATION
  Report Type: Spontaneous
  Country: US (occurrence: US)
  Receive Date: 20170815
  Receipt Date: 20191024
  Transmission Date: 20200122
  Serious: Yes (Hospitalization, Other)
  Sender: FDA-Public Use
  Company Number: US-PFIZER INC-2016465116

PATIENT
  Age: 67 Year
  Sex: Female

DRUGS (1)
  1. DILANTIN [Suspect]
     Active Substance: PHENYTOIN
     Indication: CEREBROVASCULAR ACCIDENT
     Dosage: 100 MG, DAILY

REACTIONS (8)
  - Malignant neoplasm of eye [Unknown]
  - Arthropathy [Unknown]
  - Off label use [Unknown]
  - Anticonvulsant drug level decreased [Unknown]
  - Neoplasm [Unknown]
  - Hernia [Unknown]
  - Product use in unapproved indication [Unknown]
  - Feeling abnormal [Unknown]
